FAERS Safety Report 25441047 (Version 1)
Quarter: 2025Q2

REPORT INFORMATION
  Report Type: Spontaneous
  Country: US (occurrence: US)
  Receive Date: 20250616
  Receipt Date: 20250616
  Transmission Date: 20250716
  Serious: No
  Sender: UCB
  Company Number: US-UCBSA-2025017440

PATIENT
  Sex: Male
  Weight: 152.86 kg

DRUGS (1)
  1. BIMZELX [Suspect]
     Active Substance: BIMEKIZUMAB-BKZX
     Indication: Psoriasis
     Dosage: 320 MILLIGRAM, EV 4 WEEKS (THEN EVERY 8 WEEKS THEREAFTER AS DIRECTED)
     Route: 058
     Dates: start: 202412

REACTIONS (2)
  - Product availability issue [Unknown]
  - Inappropriate schedule of product administration [Unknown]

NARRATIVE: CASE EVENT DATE: 20250101
